FAERS Safety Report 9724764 (Version 3)
Quarter: 2014Q2

REPORT INFORMATION
  Report Type: Spontaneous
  Country: US (occurrence: US)
  Receive Date: 20131202
  Receipt Date: 20140411
  Transmission Date: 20141212
  Serious: No
  Sender: FDA-Public Use
  Company Number: US-PFIZER INC-2013338922

PATIENT
  Age: 68 Year
  Sex: Female

DRUGS (16)
  1. LIPITOR [Suspect]
     Dosage: UNK
  2. OXYCODONE HYDROCHLORIDE [Suspect]
     Dosage: UNK
  3. EFFEXOR [Suspect]
     Dosage: UNK
  4. RAMIPRIL [Suspect]
     Dosage: UNK
  5. CALTRATE [Suspect]
     Dosage: UNK
  6. CRESTOR [Suspect]
     Dosage: UNK
  7. FASPRIN [Suspect]
     Dosage: UNK
  8. MEVACOR [Suspect]
     Dosage: UNK
  9. AUGMENTIN [Suspect]
     Dosage: UNK
  10. PLAVIX [Suspect]
     Dosage: UNK
  11. BYSTOLIC [Suspect]
     Dosage: UNK
  12. GLIMEPIRIDE [Suspect]
     Dosage: UNK
  13. VITAMIN D2 [Suspect]
     Dosage: UNK
  14. JANUVIA [Suspect]
     Dosage: UNK
  15. IRON [Suspect]
     Dosage: UNK
  16. IODINE [Suspect]
     Dosage: UNK

REACTIONS (1)
  - Drug hypersensitivity [Unknown]
